FAERS Safety Report 6683417-4 (Version None)
Quarter: 2010Q2

REPORT INFORMATION
  Report Type: 
  Country: None (occurrence: None)
  Receive Date: 20100415
  Receipt Date: 20100401
  Transmission Date: 20101027
  Serious: Yes (Life-Threatening, Hospitalization, Other)
  Sender: FDA-Public Use
  Company Number: US-ELI_LILLY_AND_COMPANY-US201004001494

PATIENT
  Age: 87 Year
  Sex: Male

DRUGS (2)
  1. EFFIENT [Suspect]
     Dosage: 60 MG, UNK
  2. ANGIOMAX [Concomitant]

REACTIONS (2)
  - CARDIO-RESPIRATORY ARREST [None]
  - THROMBOSIS IN DEVICE [None]
